FAERS Safety Report 6896745-4 (Version None)
Quarter: 2010Q3

REPORT INFORMATION
  Report Type: 
  Country: None (occurrence: None)
  Receive Date: 20100802
  Receipt Date: 20070122
  Transmission Date: 20110219
  Serious: No
  Sender: FDA-Public Use
  Company Number: US-PFIZER INC-2007006340

PATIENT
  Sex: Male

DRUGS (7)
  1. LYRICA [Suspect]
     Indication: NEUROPATHY PERIPHERAL
     Dates: start: 20061001
  2. NORVASC [Suspect]
  3. DITROPAN XL [Concomitant]
  4. TOFRANIL [Concomitant]
  5. NIASPAN [Concomitant]
  6. ADVICOR [Concomitant]
  7. ACETYLSALICYLIC ACID SRT [Concomitant]

REACTIONS (2)
  - AMNESIA [None]
  - MEMORY IMPAIRMENT [None]
